FAERS Safety Report 15950078 (Version 3)
Quarter: 2019Q1

REPORT INFORMATION
  Report Type: Spontaneous
  Country: US (occurrence: US)
  Receive Date: 20190212
  Receipt Date: 20190322
  Transmission Date: 20190417
  Serious: Yes (Death)
  Sender: FDA-Public Use
  Company Number: US-VERTEX PHARMACEUTICALS-2019-001059

PATIENT
  Age: 48 Year
  Sex: Female

DRUGS (13)
  1. CIPROFLOXACIN. [Concomitant]
     Active Substance: CIPROFLOXACIN
  2. LISINOPRIL                         /00894002/ [Concomitant]
     Active Substance: LISINOPRIL
  3. HYDROCHLOROTH [Concomitant]
     Active Substance: HYDROCHLOROTHIAZIDE
  4. OLMESARTAN MEDOXOMIL. [Concomitant]
     Active Substance: OLMESARTAN MEDOXOMIL
  5. SYMDEKO [Suspect]
     Active Substance: IVACAFTOR\TEZACAFTOR
     Indication: CYSTIC FIBROSIS
     Dosage: 100MG TEZACAFTOR/150MG IVACAFTOR AM; 150MG IVACAFTOR PM
     Route: 048
     Dates: start: 20180417
  6. PULMOZYME [Concomitant]
     Active Substance: DORNASE ALFA
  7. ALBUTEROL                          /00139501/ [Concomitant]
     Active Substance: ALBUTEROL
  8. BUPROPION. [Concomitant]
     Active Substance: BUPROPION
  9. AZITHROMYCIN ANHYDROUS. [Concomitant]
     Active Substance: AZITHROMYCIN ANHYDROUS
  10. AMLODIPINE [Concomitant]
     Active Substance: AMLODIPINE BESYLATE
  11. NAPROXEN                           /00256202/ [Concomitant]
     Active Substance: NAPROXEN SODIUM
  12. TOBRAMYCIN. [Concomitant]
     Active Substance: TOBRAMYCIN
  13. FUROSEMIDE. [Concomitant]
     Active Substance: FUROSEMIDE

REACTIONS (1)
  - Death [Fatal]

NARRATIVE: CASE EVENT DATE: 20190116
